FAERS Safety Report 13118637 (Version 1)
Quarter: 2017Q1

REPORT INFORMATION
  Report Type: Other
  Country: US (occurrence: US)
  Receive Date: 20170116
  Receipt Date: 20170116
  Transmission Date: 20170428
  Serious: Yes (Death)
  Sender: FDA-Public Use
  Company Number: US-LEHIGH_VALLEY-USA-POI0580201700071

PATIENT
  Age: 67 Year
  Sex: Female

DRUGS (8)
  1. SALICYLATE [Suspect]
     Active Substance: SALICYLIC ACID
     Dates: end: 2015
  2. AMLODIPINE [Suspect]
     Active Substance: AMLODIPINE BESYLATE
     Dates: end: 2015
  3. OLANZAPINE. [Suspect]
     Active Substance: OLANZAPINE
     Dates: end: 2015
  4. OXCARBAZEPINE. [Suspect]
     Active Substance: OXCARBAZEPINE
     Dates: end: 2015
  5. OMEPRAZOLE. [Suspect]
     Active Substance: OMEPRAZOLE
     Dates: end: 2015
  6. LEVOLET (LEVOTHYROXINE) [Suspect]
     Active Substance: LEVOTHYROXINE
     Dates: end: 2015
  7. METOPROLOL. [Suspect]
     Active Substance: METOPROLOL
     Dates: end: 2015
  8. ATORVASTATIN [Suspect]
     Active Substance: ATORVASTATIN
     Dates: end: 2015

REACTIONS (1)
  - Completed suicide [Fatal]

NARRATIVE: CASE EVENT DATE: 2015
